FAERS Safety Report 13698274 (Version 1)
Quarter: 2017Q2

REPORT INFORMATION
  Report Type: Report from Study
  Country: BE (occurrence: BE)
  Receive Date: 20170628
  Receipt Date: 20170628
  Transmission Date: 20170830
  Serious: Yes (Hospitalization, Other)
  Sender: FDA-Public Use
  Company Number: BE-AMGEN-301413

PATIENT
  Age: 27 Year
  Sex: Male

DRUGS (3)
  1. FILGRASTIM [Suspect]
     Active Substance: FILGRASTIM
     Indication: ACUTE LEUKAEMIA
     Dosage: 5 MUG/KG, QD
     Route: 058
     Dates: start: 19950729, end: 19950807
  2. CICLOSPORIN [Concomitant]
     Active Substance: CYCLOSPORINE
     Dosage: UNK UNK, QD
     Route: 042
  3. OFLOXACIN. [Concomitant]
     Active Substance: OFLOXACIN
     Dosage: 200 MG, BID
     Route: 042
     Dates: end: 19951023

REACTIONS (5)
  - Hepatic enzyme increased [Unknown]
  - Gastrointestinal haemorrhage [Unknown]
  - Pneumonia [Unknown]
  - Blood bilirubin increased [Unknown]
  - Graft versus host disease [Not Recovered/Not Resolved]

NARRATIVE: CASE EVENT DATE: 19950904
